FAERS Safety Report 7339094-2 (Version None)
Quarter: 2011Q1

REPORT INFORMATION
  Report Type: 
  Country: None (occurrence: None)
  Receive Date: 20110308
  Receipt Date: 20110225
  Transmission Date: 20110831
  Serious: Yes (Death)
  Sender: FDA-Public Use
  Company Number: DE-BAXTER-2011BH003745

PATIENT
  Sex: Female

DRUGS (3)
  1. PHYSIOSOL IN PLASTIC CONTAINER [Suspect]
     Indication: PERITONEAL DIALYSIS
     Route: 033
     Dates: start: 20110214
  2. DIANEAL PD-1 [Suspect]
     Indication: NEPHROSCLEROSIS
     Route: 033
     Dates: start: 20070703, end: 20110214
  3. DIANEAL PD-1 [Suspect]
     Indication: PERITONEAL DIALYSIS
     Route: 033
     Dates: start: 20070703, end: 20110214

REACTIONS (1)
  - VENTRICULAR ARRHYTHMIA [None]
